FAERS Safety Report 9495873 (Version 2)
Quarter: 2013Q3

REPORT INFORMATION
  Report Type: Report from Study
  Country: DE (occurrence: DE)
  Receive Date: 20130903
  Receipt Date: 20130920
  Transmission Date: 20140515
  Serious: Yes (Life-Threatening, Hospitalization)
  Sender: FDA-Public Use
  Company Number: DE-BAYER-2012-130748

PATIENT
  Sex: Male
  Weight: 85 kg

DRUGS (1)
  1. REGORAFENIB [Suspect]
     Indication: COLORECTAL CANCER METASTATIC
     Dosage: 40 MG, TID
     Route: 048
     Dates: start: 20121126, end: 20121209

REACTIONS (1)
  - Thrombocytopenia [Recovered/Resolved]
